FAERS Safety Report 9520512 (Version 4)
Quarter: 2013Q4

REPORT INFORMATION
  Report Type: Spontaneous
  Country: US (occurrence: US)
  Receive Date: 20130913
  Receipt Date: 20131001
  Transmission Date: 20140711
  Serious: Yes (Other)
  Sender: FDA-Public Use
  Company Number: US-AMGEN-USASP2013058584

PATIENT
  Age: 72 Year
  Sex: Male
  Weight: 58.5 kg

DRUGS (13)
  1. PROCRIT [Suspect]
     Indication: NEPHROGENIC ANAEMIA
     Dosage: 20000 UNIT, Q2WK
     Route: 065
     Dates: start: 201101
  2. PROCRIT [Suspect]
     Indication: RENAL FAILURE CHRONIC
  3. PROCRIT [Suspect]
     Indication: MONOCLONAL GAMMOPATHY
  4. METOPROLOL SUCCINATE [Concomitant]
     Dosage: 200 MG, UNK
  5. ASPIRIN [Concomitant]
     Dosage: 81 MG, QD
  6. ADALAT CC [Concomitant]
     Dosage: 30 MG, BID
  7. SORIATANE [Concomitant]
     Dosage: 10 MG, QD
  8. TRAMADOL HCL [Concomitant]
     Dosage: 50 MG, AS NECESSARY
  9. LORAZEPAM [Concomitant]
     Dosage: 0.5 MG, QD
  10. PREDNISONE [Concomitant]
     Dosage: 10 MG, QD
  11. ERGOCALCIFEROL [Concomitant]
     Dosage: 50000 UNIT, QMO
  12. FUROSEMIDE [Concomitant]
     Dosage: 20 MG, QD
  13. SIMVASTATIN [Concomitant]
     Dosage: 10 MG, QD

REACTIONS (6)
  - Therapeutic response decreased [Not Recovered/Not Resolved]
  - Renal failure chronic [Unknown]
  - Anaemia [Unknown]
  - Biopsy bone marrow abnormal [Not Recovered/Not Resolved]
  - Fatigue [Unknown]
  - Drug resistance [Unknown]
